FAERS Safety Report 4368602-9 (Version None)
Quarter: 2004Q2

REPORT INFORMATION
  Report Type: 
  Country: None (occurrence: None)
  Receive Date: 20040602
  Receipt Date: 20040514
  Transmission Date: 20050107
  Serious: Yes (Hospitalization)
  Sender: FDA-Public Use
  Company Number: 04P-056-0254514-00

PATIENT
  Age: 69 Year
  Sex: Female
  Weight: 95 kg

DRUGS (8)
  1. TRICOR [Suspect]
     Indication: HYPERCHOLESTEROLAEMIA
     Dosage: 1 IN 1 D, ORAL
     Route: 048
     Dates: start: 20040304, end: 20040304
  2. BACTRIM [Suspect]
     Indication: URINARY TRACT INFECTION
     Dates: start: 20040323, end: 20040323
  3. CO-DIOVAN [Concomitant]
  4. NIF-TEN ^IMPERIAL^ [Concomitant]
  5. ALDACTAZINE [Concomitant]
  6. LEVOKIT CA [Concomitant]
  7. KETOFEN FUMARATE [Concomitant]
  8. TROXERUTIN [Concomitant]

REACTIONS (3)
  - STREPTOCOCCAL INFECTION [None]
  - TOXIC EPIDERMAL NECROLYSIS [None]
  - URINARY TRACT INFECTION [None]
